FAERS Safety Report 10163167 (Version 8)
Quarter: 2015Q3

REPORT INFORMATION
  Report Type: Spontaneous
  Country: US (occurrence: US)
  Receive Date: 20140509
  Receipt Date: 20150828
  Transmission Date: 20151125
  Serious: Yes (Death, Hospitalization, Other)
  Sender: FDA-Public Use
  Company Number: US-GLAXOSMITHKLINE-A1072655A

PATIENT

DRUGS (6)
  1. FLOLAN [Suspect]
     Active Substance: EPOPROSTENOL SODIUM
     Dosage: 30 NG/KG/MIN CO
     Route: 042
  2. WARFARIN [Concomitant]
     Active Substance: WARFARIN
  3. FLOLAN [Suspect]
     Active Substance: EPOPROSTENOL SODIUM
     Dosage: UNK
     Dates: start: 20110226
  4. FLOLAN [Suspect]
     Active Substance: EPOPROSTENOL SODIUM
     Dosage: 30 NG/KG/MIN
  5. VELETRI [Concomitant]
     Active Substance: EPOPROSTENOL
  6. FLOLAN [Suspect]
     Active Substance: EPOPROSTENOL SODIUM
     Indication: PULMONARY ARTERIAL HYPERTENSION
     Dosage: 30 NG/KG/MIN, CONC. 45,000 NG/ML, PUMP RATE 53 ML/DAY, VIAL STRENGTH 1.5 MG
     Route: 042
     Dates: start: 20110226

REACTIONS (6)
  - Dyspnoea [Not Recovered/Not Resolved]
  - Pulmonary hypertension [Fatal]
  - Confusional state [Not Recovered/Not Resolved]
  - Hospitalisation [Recovered/Resolved]
  - Mental status changes [Unknown]
  - Right ventricular failure [Fatal]

NARRATIVE: CASE EVENT DATE: 20140430
